FAERS Safety Report 8083080-4 (Version None)
Quarter: 2012Q1

REPORT INFORMATION
  Report Type: 
  Country: None (occurrence: None)
  Receive Date: 20120127
  Receipt Date: 20110302
  Transmission Date: 20120608
  Serious: No
  Sender: FDA-Public Use
  Company Number: US-ABBOTT-11P-163-0708920-00

PATIENT
  Sex: Female

DRUGS (3)
  1. HUMIRA [Suspect]
     Indication: CROHN'S DISEASE
     Dosage: 160 MG LOADING DOSE
     Dates: start: 20110131, end: 20110131
  2. HUMIRA [Suspect]
     Dosage: 80 MG LOADING DOSE
     Dates: start: 20110214, end: 20110214
  3. HUMIRA [Suspect]
     Dates: start: 20110228

REACTIONS (1)
  - INFECTION [None]
